FAERS Safety Report 8269739-4 (Version None)
Quarter: 2012Q2

REPORT INFORMATION
  Report Type: 
  Country: None (occurrence: None)
  Receive Date: 20120406
  Receipt Date: 20120323
  Transmission Date: 20120825
  Serious: Yes (Other)
  Sender: FDA-Public Use
  Company Number: US-2012-10340

PATIENT
  Age: 38 Year
  Sex: Male

DRUGS (5)
  1. FISH OIL (FISH OIL) [Concomitant]
  2. VITAMIN D (COLECALCIFEROL) [Concomitant]
  3. SAMSCA [Suspect]
     Indication: CONGENITAL CYSTIC KIDNEY DISEASE
     Dosage: 120 MG MILLIGRAM(S), DAILY DOSE, ORAL
     Route: 048
     Dates: start: 20110329, end: 20120323
  4. JUICE PLUS (AMYLASE, ASCORBIC ACID, CELLULASE, FOLIC ACID, LIPASE, PRO [Concomitant]
  5. LISINOPRIL [Concomitant]

REACTIONS (2)
  - ASPARTATE AMINOTRANSFERASE INCREASED [None]
  - HEPATIC ENZYME INCREASED [None]
